FAERS Safety Report 8544615-8 (Version None)
Quarter: 2012Q3

REPORT INFORMATION
  Report Type: 
  Country: None (occurrence: None)
  Receive Date: 20120717
  Receipt Date: 20120703
  Transmission Date: 20120928
  Serious: Yes (Hospitalization, Other)
  Sender: FDA-Public Use
  Company Number: AUR-APL-2012-02918

PATIENT
  Age: 63 Year
  Sex: Male

DRUGS (2)
  1. GALANTAMINE HYDROBROMIDE [Suspect]
     Indication: PRODUCT USED FOR UNKNOWN INDICATION
  2. DONEPEZIL HCL [Suspect]
     Indication: PRODUCT USED FOR UNKNOWN INDICATION

REACTIONS (12)
  - CRYING [None]
  - AGITATION [None]
  - REFUSAL OF TREATMENT BY PATIENT [None]
  - CONDITION AGGRAVATED [None]
  - ABNORMAL BEHAVIOUR [None]
  - RESPIRATORY DISTRESS [None]
  - IRRITABILITY [None]
  - FLASHBACK [None]
  - SOCIAL AVOIDANT BEHAVIOUR [None]
  - NIGHTMARE [None]
  - THINKING ABNORMAL [None]
  - POST-TRAUMATIC STRESS DISORDER [None]
